FAERS Safety Report 8193381-7 (Version None)
Quarter: 2012Q1

REPORT INFORMATION
  Report Type: 
  Country: None (occurrence: None)
  Receive Date: 20120308
  Receipt Date: 20120227
  Transmission Date: 20120608
  Serious: Yes (Hospitalization, Other)
  Sender: FDA-Public Use
  Company Number: US-SANOFI-AVENTIS-2011SA021441

PATIENT
  Age: 58 Year
  Sex: Female

DRUGS (3)
  1. GLUCOPHAGE [Concomitant]
  2. MULTAQ [Suspect]
     Route: 048
     Dates: start: 20100101
  3. LOVENOX [Concomitant]
     Route: 065
     Dates: start: 20100101, end: 20100401

REACTIONS (13)
  - COMPRESSION FRACTURE [None]
  - SEPSIS [None]
  - NAUSEA [None]
  - DIARRHOEA [None]
  - VENTRICULAR TACHYCARDIA [None]
  - WOUND INFECTION [None]
  - RENAL FAILURE [None]
  - POLYP [None]
  - DEEP VEIN THROMBOSIS [None]
  - URINARY TRACT INFECTION [None]
  - KLEBSIELLA INFECTION [None]
  - BLOOD POTASSIUM ABNORMAL [None]
  - DIVERTICULITIS [None]
